FAERS Safety Report 4894463-5 (Version None)
Quarter: 2006Q1

REPORT INFORMATION
  Report Type: 
  Country: None (occurrence: None)
  Receive Date: 20060127
  Receipt Date: 20010330
  Transmission Date: 20060701
  Serious: Yes (Hospitalization, Other)
  Sender: FDA-Public Use
  Company Number: PHEH2001US02934

PATIENT
  Age: 62 Year
  Sex: Male
  Weight: 58.9 kg

DRUGS (1)
  1. SANDOSTATIN LAR [Suspect]
     Indication: DIABETIC RETINOPATHY
     Dosage: 30 MG, UNK
     Route: 030
     Dates: start: 20000615, end: 20010322

REACTIONS (8)
  - ALANINE AMINOTRANSFERASE INCREASED [None]
  - ASPARTATE AMINOTRANSFERASE INCREASED [None]
  - ASTHENIA [None]
  - CARDIAC FAILURE CONGESTIVE [None]
  - DIABETIC CARDIOMYOPATHY [None]
  - DYSPNOEA [None]
  - RENAL FAILURE [None]
  - VENTRICULAR HYPERTROPHY [None]
